FAERS Safety Report 9205766 (Version 1)
Quarter: 2013Q2

REPORT INFORMATION
  Report Type: Spontaneous
  Country: FR (occurrence: None)
  Receive Date: 20130401
  Receipt Date: 20130401
  Transmission Date: 20140414
  Serious: Yes (Other)
  Sender: FDA-Public Use
  Company Number: LTI2013A00027

PATIENT
  Age: 65 Year
  Sex: Female

DRUGS (2)
  1. OGASTORO [Suspect]
     Indication: PRODUCT USED FOR UNKNOWN INDICATION
     Dosage: 30 MG (30 MG, 1 IN 1 D)  ORAL
     Route: 048
     Dates: start: 20130109, end: 20130109
  2. EVISTA (RALOXIFENE HYDROCHLORIDE) [Concomitant]

REACTIONS (7)
  - Malaise [None]
  - Laryngeal discomfort [None]
  - Pallor [None]
  - Rash pruritic [None]
  - Rash generalised [None]
  - Erythema [None]
  - Tremor [None]
